FAERS Safety Report 19488213 (Version 5)
Quarter: 2021Q3

REPORT INFORMATION
  Report Type: Spontaneous
  Country: JP (occurrence: JP)
  Receive Date: 20210702
  Receipt Date: 20210712
  Transmission Date: 20211014
  Serious: Yes (Other)
  Sender: FDA-Public Use
  Company Number: JP-BIOCRYST-2021BCR00177

PATIENT
  Age: 36 Year
  Sex: Female
  Weight: 40 kg

DRUGS (4)
  1. BERINERT P [Concomitant]
     Active Substance: HUMAN C1-ESTERASE INHIBITOR
     Indication: HEREDITARY ANGIOEDEMA
     Dosage: 1000 IU, 1X/DAY
     Route: 042
  2. ORLADEYO [Suspect]
     Active Substance: BEROTRALSTAT HYDROCHLORIDE
     Indication: HEREDITARY ANGIOEDEMA
     Dosage: 150 MG, 1X/DAY
     Route: 048
     Dates: start: 20210506, end: 20210519
  3. GASTER [Concomitant]
     Active Substance: FAMOTIDINE
     Indication: ABDOMINAL PAIN UPPER
     Dosage: 10 MG, 2X/DAY
     Route: 048
  4. NAUZELIN [Concomitant]
     Active Substance: DOMPERIDONE

REACTIONS (9)
  - Nausea [Recovering/Resolving]
  - Malaise [Recovering/Resolving]
  - Headache [Recovering/Resolving]
  - Abdominal distension [Recovering/Resolving]
  - Vomiting [Recovered/Resolved]
  - Ear discomfort [Recovering/Resolving]
  - Abdominal pain [Recovered/Resolved]
  - Diarrhoea [Recovered/Resolved]
  - Amenorrhoea [Recovering/Resolving]

NARRATIVE: CASE EVENT DATE: 20210508
